FAERS Safety Report 6691553-1 (Version None)
Quarter: 2010Q2

REPORT INFORMATION
  Report Type: 
  Country: None (occurrence: None)
  Receive Date: 20100422
  Receipt Date: 20100412
  Transmission Date: 20101027
  Serious: Yes (Hospitalization)
  Sender: FDA-Public Use
  Company Number: FR-TEVA-230938ISR

PATIENT
  Age: 10 Year
  Sex: Male

DRUGS (8)
  1. OXCARBAZEPINE [Suspect]
     Route: 048
  2. OXCARBAZEPINE [Suspect]
     Route: 048
  3. OXCARBAZEPINE [Suspect]
     Route: 048
  4. OXCARBAZEPINE [Suspect]
     Route: 048
  5. CLARITHROMYCIN [Suspect]
     Indication: RESPIRATORY TRACT INFECTION
  6. LAMOTRIGINE [Concomitant]
  7. VALPROIC ACID [Concomitant]
  8. TOPIRAMATE [Concomitant]

REACTIONS (8)
  - ATAXIA [None]
  - DIZZINESS [None]
  - DRUG INTERACTION [None]
  - HYPERKINESIA [None]
  - NYSTAGMUS [None]
  - SOMNOLENCE [None]
  - THERAPEUTIC AGENT TOXICITY [None]
  - VOMITING [None]
